FAERS Safety Report 8738175 (Version 2)
Quarter: 2013Q4

REPORT INFORMATION
  Report Type: Spontaneous
  Country: US (occurrence: US)
  Receive Date: 20120823
  Receipt Date: 20131101
  Transmission Date: 20140711
  Serious: No
  Sender: FDA-Public Use
  Company Number: US-009507513-01081433

PATIENT
  Age: 60 Year
  Sex: Female

DRUGS (6)
  1. FOSAMAX [Suspect]
     Dosage: 70 MG, QW
     Route: 048
     Dates: start: 20010731, end: 20010807
  2. CENESTIN [Concomitant]
  3. PROMETRIUM [Concomitant]
  4. NORVASC [Concomitant]
  5. LIPITOR [Concomitant]
  6. IBUPROFEN [Concomitant]

REACTIONS (1)
  - Rash [Not Recovered/Not Resolved]
